FAERS Safety Report 13522262 (Version 2)
Quarter: 2017Q2

REPORT INFORMATION
  Report Type: Report from Study
  Country: US (occurrence: BR)
  Receive Date: 20170508
  Receipt Date: 20170620
  Transmission Date: 20170830
  Serious: Yes (Other)
  Sender: FDA-Public Use
  Company Number: US-SUNOVION-2017SUN001928

PATIENT
  Sex: Female
  Weight: 67 kg

DRUGS (2)
  1. ALENIA [Concomitant]
     Active Substance: BUDESONIDE\FORMOTEROL FUMARATE
     Indication: BREATH ODOUR
  2. INDACATEROL AND GLYCOPYRROLATE [Suspect]
     Active Substance: GLYCOPYRROLATE\INDACATEROL MALEATE
     Indication: BRONCHITIS
     Dosage: 1 DF( 110 UG INDACATEROL/50 UG GLYCOPYRRONIUM BROMIDE), QD
     Route: 055
     Dates: start: 20170224

REACTIONS (15)
  - Malaise [Unknown]
  - Breath odour [Unknown]
  - Nocturnal dyspnoea [Unknown]
  - Condition aggravated [Unknown]
  - Agitation [Unknown]
  - Gait disturbance [Unknown]
  - Cough [Unknown]
  - Concomitant disease aggravated [Unknown]
  - Memory impairment [Unknown]
  - Psychiatric symptom [Unknown]
  - Arrhythmia [Unknown]
  - Dyspnoea exertional [Unknown]
  - Fatigue [Unknown]
  - Blood pressure abnormal [Unknown]
  - Bronchitis [Unknown]
